FAERS Safety Report 8909666 (Version 1)
Quarter: 2012Q4

REPORT INFORMATION
  Report Type: 
  Country: FR (occurrence: FR)
  Receive Date: 20121115
  Receipt Date: 20121115
  Transmission Date: 20130627
  Serious: Yes (Hospitalization)
  Sender: FDA-Public Use
  Company Number: FR-ROCHE-1154709

PATIENT
  Age: 44 Year
  Sex: Female

DRUGS (3)
  1. PEGASYS [Suspect]
     Indication: ESSENTIAL THROMBOCYTHAEMIA
     Route: 058
     Dates: start: 20120913, end: 20120913
  2. KARDEGIC [Concomitant]
     Route: 048
  3. TARDYFERON (FRANCE) [Concomitant]
     Route: 048

REACTIONS (3)
  - Dizziness [Recovered/Resolved]
  - Paraesthesia [Recovered/Resolved]
  - VIIth nerve paralysis [Recovered/Resolved]
